FAERS Safety Report 11778174 (Version 2)
Quarter: 2015Q4

REPORT INFORMATION
  Report Type: Spontaneous
  Country: US (occurrence: US)
  Receive Date: 20151125
  Receipt Date: 20151224
  Transmission Date: 20160304
  Serious: Yes (Death)
  Sender: FDA-Public Use
  Company Number: US-INCYTE CORPORATION-2015IN006177

PATIENT
  Age: 76 Year
  Sex: Female
  Weight: 45.8 kg

DRUGS (2)
  1. JAKAFI [Suspect]
     Active Substance: RUXOLITINIB
     Indication: MYELOFIBROSIS
     Dosage: 5 MG, BID
     Route: 048
  2. JAKAFI [Suspect]
     Active Substance: RUXOLITINIB
     Dosage: 2 MG (2 TABS) DAILY
     Route: 048
     Dates: start: 20140915, end: 20151005

REACTIONS (2)
  - Medication error [Unknown]
  - Disease progression [Fatal]

NARRATIVE: CASE EVENT DATE: 20151017
